FAERS Safety Report 23688816 (Version 2)
Quarter: 2024Q2

REPORT INFORMATION
  Report Type: Spontaneous
  Country: CN (occurrence: CN)
  Receive Date: 20240329
  Receipt Date: 20240418
  Transmission Date: 20240715
  Serious: Yes (Other)
  Sender: FDA-Public Use
  Company Number: CN-GILEAD-2024-0667249

PATIENT
  Sex: Male

DRUGS (1)
  1. VEMLIDY [Suspect]
     Active Substance: TENOFOVIR ALAFENAMIDE FUMARATE
     Indication: Hepatitis B
     Dosage: 1 DOSAGE FORM, QD
     Route: 065
     Dates: start: 2019

REACTIONS (4)
  - Anal haemorrhage [Not Recovered/Not Resolved]
  - Platelet count decreased [Recovering/Resolving]
  - Hepatic steatosis [Unknown]
  - Transaminases decreased [Unknown]
